FAERS Safety Report 11429935 (Version 1)
Quarter: 2015Q3

REPORT INFORMATION
  Report Type: Spontaneous
  Country: US (occurrence: US)
  Receive Date: 20150828
  Receipt Date: 20150828
  Transmission Date: 20151125
  Serious: No
  Sender: FDA-Public Use
  Company Number: US-ROCHE-1135147

PATIENT
  Sex: Male

DRUGS (5)
  1. RIBAVIRIN. [Suspect]
     Active Substance: RIBAVIRIN
     Indication: HEPATITIS C
     Route: 065
     Dates: start: 20120620
  2. VICTRELIS [Suspect]
     Active Substance: BOCEPREVIR
     Indication: HEPATITIS C
     Route: 065
     Dates: start: 20120718
  3. METOPROLOL [Concomitant]
     Active Substance: METOPROLOL
     Indication: HYPERTENSION
     Route: 065
  4. PEGASYS [Suspect]
     Active Substance: PEGINTERFERON ALFA-2A
     Indication: HEPATITIS C
     Route: 058
     Dates: start: 20120620
  5. HCTZ [Concomitant]
     Active Substance: HYDROCHLOROTHIAZIDE
     Indication: HYPERTENSION
     Route: 065

REACTIONS (18)
  - Sensation of foreign body [Unknown]
  - Weight decreased [Unknown]
  - Blood potassium decreased [Unknown]
  - Urinary tract infection [Unknown]
  - Dysgeusia [Unknown]
  - Bloody discharge [Unknown]
  - Muscle atrophy [Unknown]
  - Diarrhoea [Unknown]
  - Pollakiuria [Unknown]
  - Tinnitus [Unknown]
  - Dehydration [Unknown]
  - Decreased appetite [Unknown]
  - White blood cell count decreased [Unknown]
  - Prostatic specific antigen increased [Unknown]
  - Prostatomegaly [Unknown]
  - Malaise [Unknown]
  - Fatigue [Unknown]
  - Chills [Unknown]
